FAERS Safety Report 8473957-X (Version None)
Quarter: 2012Q2

REPORT INFORMATION
  Report Type: 
  Country: None (occurrence: None)
  Receive Date: 20120628
  Receipt Date: 20120427
  Transmission Date: 20120825
  Serious: Yes (Other)
  Sender: FDA-Public Use
  Company Number: US-MYLANLABS-2012S1004164

PATIENT
  Age: 46 Year
  Sex: Female

DRUGS (8)
  1. KLONOPIN [Concomitant]
  2. CLOZAPINE [Suspect]
     Dates: start: 20120301, end: 20120401
  3. LITHIUM CARBONATE [Concomitant]
  4. ATIVAN [Concomitant]
     Dosage: USING 1/2 OF A 0.5MG TABLET
  5. CLOZAPINE [Suspect]
     Dates: end: 20120302
  6. SEROQUEL [Concomitant]
  7. COGENTIN [Concomitant]
  8. ZYPREXA [Concomitant]

REACTIONS (2)
  - LEUKOPENIA [None]
  - GRANULOCYTOPENIA [None]
